FAERS Safety Report 23546785 (Version 2)
Quarter: 2024Q4

REPORT INFORMATION
  Report Type: Report from Study
  Country: IN (occurrence: IN)
  Receive Date: 20240221
  Receipt Date: 20241129
  Transmission Date: 20250114
  Serious: Yes (Other)
  Sender: TAKEDA
  Company Number: IN-TAKEDA-2022TUS099192

PATIENT
  Sex: Male

DRUGS (1)
  1. VEDOLIZUMAB [Suspect]
     Active Substance: VEDOLIZUMAB
     Indication: Crohn^s disease
     Dosage: 300 MILLIGRAM

REACTIONS (3)
  - Crohn^s disease [Unknown]
  - Expired product administered [Unknown]
  - Inappropriate schedule of product administration [Unknown]
